FAERS Safety Report 5674523-1 (Version None)
Quarter: 2008Q2

REPORT INFORMATION
  Report Type: 
  Country: None (occurrence: None)
  Receive Date: 20080304
  Receipt Date: 20080117
  Transmission Date: 20081010
  Serious: No
  Sender: FDA-Public Use
  Company Number: 0800556US

PATIENT
  Age: 80 Year
  Sex: Male

DRUGS (2)
  1. SANCTURA XR [Suspect]
     Indication: HYPERTONIC BLADDER
     Dosage: QD, ORAL
     Route: 048
     Dates: start: 20080110, end: 20080116
  2. SANCTURA XR [Suspect]
     Indication: POLLAKIURIA
     Dosage: QD, ORAL
     Route: 048
     Dates: start: 20080110, end: 20080116

REACTIONS (2)
  - POLLAKIURIA [None]
  - URINARY INCONTINENCE [None]
